FAERS Safety Report 13139598 (Version 1)
Quarter: 2017Q1

REPORT INFORMATION
  Report Type: Report from Study
  Country: US (occurrence: US)
  Receive Date: 20170123
  Receipt Date: 20170123
  Transmission Date: 20170428
  Serious: Yes (Death, Other)
  Sender: FDA-Public Use
  Company Number: US-009507513-1612USA007458

PATIENT
  Age: 61 Year
  Sex: Male
  Weight: 62.59 kg

DRUGS (5)
  1. KEYTRUDA [Suspect]
     Active Substance: PEMBROLIZUMAB
     Indication: METASTASES TO CENTRAL NERVOUS SYSTEM
  2. KEYTRUDA [Suspect]
     Active Substance: PEMBROLIZUMAB
     Indication: LUNG CARCINOMA CELL TYPE UNSPECIFIED STAGE III
     Dosage: 3 MG/KG, EVERY 6 WEEKS
     Route: 042
     Dates: start: 20160412, end: 20160816
  3. TAXOTERE [Suspect]
     Active Substance: DOCETAXEL
     Indication: METASTASES TO CENTRAL NERVOUS SYSTEM
  4. OPDIVO [Suspect]
     Active Substance: NIVOLUMAB
     Dosage: 1 MG/KG, UNK
     Route: 042
  5. TAXOTERE [Suspect]
     Active Substance: DOCETAXEL
     Indication: LUNG CARCINOMA CELL TYPE UNSPECIFIED STAGE III
     Dosage: 25 MG/ML, UNK
     Route: 042
     Dates: start: 20160412, end: 20160816

REACTIONS (2)
  - Product use issue [Unknown]
  - Malignant neoplasm progression [Fatal]

NARRATIVE: CASE EVENT DATE: 20160412
